FAERS Safety Report 24053945 (Version 1)
Quarter: 2024Q3

REPORT INFORMATION
  Report Type: Spontaneous
  Country: GB (occurrence: GB)
  Receive Date: 20240705
  Receipt Date: 20240705
  Transmission Date: 20241016
  Serious: No
  Sender: ALKEM
  Company Number: None

PATIENT
  Age: 85 Year
  Sex: Female
  Weight: 92.63 kg

DRUGS (8)
  1. SOLIFENACIN [Suspect]
     Active Substance: SOLIFENACIN
     Indication: Adverse drug reaction
     Dosage: UNK, QD, ONE TO BE TAKEN EACH DAY
     Route: 065
     Dates: start: 20240304, end: 20240305
  2. CLARITHROMYCIN [Concomitant]
     Active Substance: CLARITHROMYCIN
     Indication: Product used for unknown indication
     Dosage: UNK, BID (ONE TO BE TAKEN TWICE A DAY)
     Route: 065
     Dates: start: 20240304
  3. DOXYCYCLINE [Concomitant]
     Active Substance: DOXYCYCLINE\DOXYCYCLINE HYCLATE
     Indication: Lower respiratory tract infection
     Dosage: 1 DOSAGE FORM, BID, TAKE ONE CAPSULE TWICE DAILY FOR 5 DAYS
     Route: 065
     Dates: start: 20240113, end: 20240225
  4. MOMETASONE [Concomitant]
     Active Substance: MOMETASONE
     Indication: Product used for unknown indication
     Dosage: UNK, ONE SPRAY TO BE USED IN EACH NOSTRIL ONCE A DAY
     Route: 065
     Dates: start: 20240304
  5. NITROFURANTOIN [Concomitant]
     Active Substance: NITROFURANTOIN
     Indication: Adverse drug reaction
     Dosage: UNK, BID (ONE TO BE TAKEN TWICE A DAY WITH FOOD)
     Route: 065
     Dates: start: 20240213
  6. PREDNISOLONE [Concomitant]
     Active Substance: PREDNISOLONE
     Indication: Lower respiratory tract infection
     Dosage: UNK, EIGHT TO BE TAKEN EACH DAY
     Route: 065
     Dates: start: 20240226, end: 20240304
  7. PREDNISOLONE [Concomitant]
     Active Substance: PREDNISOLONE
     Dosage: 8 DOSAGE FORM, TAKE EIGHT TABLETS AS ONE DOSE EACH MORNING FOR 5 DAYS
     Route: 065
     Dates: start: 20240113, end: 20240225
  8. SOLIFENACIN [Concomitant]
     Active Substance: SOLIFENACIN
     Indication: Adverse drug reaction
     Dosage: UNK, QD (ONE TO BE TAKEN EACH DAY)
     Route: 065
     Dates: start: 20240304, end: 20240305

REACTIONS (2)
  - Dizziness [Unknown]
  - Pruritus [Unknown]
